FAERS Safety Report 9711899 (Version 1)
Quarter: 2013Q4

REPORT INFORMATION
  Report Type: Spontaneous
  Country: US (occurrence: US)
  Receive Date: 20131126
  Receipt Date: 20131126
  Transmission Date: 20140711
  Serious: No
  Sender: FDA-Public Use
  Company Number: US-BRISTOL-MYERS SQUIBB COMPANY-18828186

PATIENT
  Age: 60 Year
  Sex: Female

DRUGS (7)
  1. BYDUREON [Suspect]
     Dosage: NO OF INJ:7?LAST INJ:11APR2013
     Dates: end: 20130411
  2. JANUVIA [Concomitant]
  3. CRESTOR [Concomitant]
  4. GLYBURIDE [Concomitant]
  5. PLAVIX [Concomitant]
  6. XANAX [Concomitant]
  7. ZOFRAN [Concomitant]

REACTIONS (8)
  - Injection site pain [Unknown]
  - Nausea [Unknown]
  - Vomiting [Unknown]
  - Diarrhoea [Unknown]
  - Eructation [Unknown]
  - Abdominal pain upper [Unknown]
  - Dyspepsia [Unknown]
  - Weight decreased [Unknown]
